FAERS Safety Report 5612360-4 (Version None)
Quarter: 2008Q1

REPORT INFORMATION
  Report Type: 
  Country: None (occurrence: None)
  Receive Date: 20080201
  Receipt Date: 20080201
  Transmission Date: 20080703
  Serious: No
  Sender: FDA-Public Use
  Company Number: None

PATIENT
  Age: 30 Year
  Sex: Male
  Weight: 56.5 kg

DRUGS (1)
  1. HEPARIN SODIUM INJECTION [Suspect]
     Indication: RENAL FAILURE CHRONIC
     Dosage: 400U BOLUS IVP
     Route: 042

REACTIONS (3)
  - DYSPHAGIA [None]
  - SWELLING FACE [None]
  - VOMITING [None]
